FAERS Safety Report 16088712 (Version 1)
Quarter: 2019Q1

REPORT INFORMATION
  Report Type: Spontaneous
  Country: US (occurrence: US)
  Receive Date: 20190319
  Receipt Date: 20190319
  Transmission Date: 20190418
  Serious: No
  Sender: FDA-Public Use
  Company Number: US-PFIZER INC-2018278341

PATIENT
  Age: 4 Year
  Sex: Female

DRUGS (2)
  1. GENOTROPIN [Suspect]
     Active Substance: SOMATROPIN
     Dosage: 0.7 MG, DAILY
     Dates: start: 20180505
  2. GENOTROPIN [Suspect]
     Active Substance: SOMATROPIN
     Dosage: 0.7 MG, 1X/DAY(NIGHTLY)
     Dates: start: 201805, end: 20180706

REACTIONS (3)
  - Product dose omission [Unknown]
  - Wrong technique in device usage process [Unknown]
  - Headache [Unknown]

NARRATIVE: CASE EVENT DATE: 2018
